FAERS Safety Report 7672639-1 (Version None)
Quarter: 2011Q3

REPORT INFORMATION
  Report Type: 
  Country: None (occurrence: None)
  Receive Date: 20110809
  Receipt Date: 20110802
  Transmission Date: 20111222
  Serious: Yes (Other)
  Sender: FDA-Public Use
  Company Number: US-JNJFOC-20110802941

PATIENT
  Sex: Female
  Weight: 88.45 kg

DRUGS (3)
  1. LEVAQUIN [Suspect]
     Route: 048
     Dates: start: 20100826, end: 20100915
  2. LEVAQUIN [Suspect]
     Indication: BACTERIAL INFECTION
     Route: 042
     Dates: start: 20100818, end: 20100825
  3. VERAPAMIL [Concomitant]
     Indication: HYPERTENSION
     Route: 048
     Dates: start: 20090101

REACTIONS (3)
  - WHITE BLOOD CELL COUNT DECREASED [None]
  - UMBILICAL HAEMORRHAGE [None]
  - DIVERTICULUM [None]
